FAERS Safety Report 8963194 (Version 2)
Quarter: 2012Q4

REPORT INFORMATION
  Report Type: Report from Study
  Country: JP (occurrence: JP)
  Receive Date: 20121213
  Receipt Date: 20121228
  Transmission Date: 20130627
  Serious: Yes (Hospitalization)
  Sender: FDA-Public Use
  Company Number: JP-OTSUKA-JP-2012-17043

PATIENT
  Age: 85 Year
  Sex: Male
  Weight: 78 kg

DRUGS (15)
  1. SAMSCA [Suspect]
     Indication: FLUID RETENTION
     Dosage: 7.5 Mg milligram(s), qam
     Route: 048
     Dates: start: 20121127, end: 20121201
  2. SAMSCA [Suspect]
     Dosage: UNK
     Route: 048
  3. RENIVACE [Suspect]
     Indication: CARDIAC FAILURE
     Dosage: 5 Mg milligram(s), daily dose
     Route: 048
     Dates: start: 20121123, end: 20121202
  4. RENIVACE [Suspect]
     Indication: HYPERTENSION
  5. ARTIST [Concomitant]
     Indication: CARDIAC FAILURE
     Dosage: 10 Mg milligram(s), daily dose
     Route: 048
     Dates: start: 20121119
  6. ARTIST [Concomitant]
     Indication: HYPERTENSION
  7. DIART [Concomitant]
     Indication: CARDIAC FAILURE
     Dosage: 30 Mg milligram(s), daily dose
     Route: 048
     Dates: start: 20121119
  8. DIART [Concomitant]
     Indication: HYPERTENSION
  9. NORVASC [Concomitant]
     Indication: HYPERTENSION
     Dosage: 10 Mg milligram(s), daily dose
     Route: 048
     Dates: start: 20121119
  10. ACINON [Concomitant]
     Indication: GASTRITIS
     Dosage: 300 Mg milligram(s), daily dose
     Route: 048
     Dates: start: 20121119
  11. OLMETEC [Concomitant]
     Indication: HYPERTENSION
     Dosage: 20 Mg milligram(s), daily dose
     Route: 048
     Dates: start: 20121119
  12. NAUZELIN [Concomitant]
     Indication: GASTRITIS
     Dosage: 2 Mg milligram(s), daily dose
     Route: 048
     Dates: start: 20121119
  13. URSO [Concomitant]
     Dosage: 300 Mg milligram(s), daily dose
     Route: 048
     Dates: start: 20121119
  14. OPALMON [Concomitant]
     Indication: HYPOAESTHESIA
     Dosage: 15 mcg, daily dose
     Route: 048
     Dates: start: 20121119
  15. LYRICA [Concomitant]
     Indication: HYPOAESTHESIA
     Dosage: 150 Mg milligram(s), daily dose
     Route: 048
     Dates: start: 20121119

REACTIONS (2)
  - Angioedema [Recovered/Resolved]
  - Swollen tongue [Recovered/Resolved]
